FAERS Safety Report 19543992 (Version 1)
Quarter: 2021Q3

REPORT INFORMATION
  Report Type: Spontaneous
  Country: US (occurrence: US)
  Receive Date: 20210713
  Receipt Date: 20210713
  Transmission Date: 20211014
  Serious: No
  Sender: FDA-Public Use
  Company Number: US-FERRINGPH-2020FE07423

PATIENT
  Sex: Male

DRUGS (1)
  1. ZOMACTON [Suspect]
     Active Substance: SOMATROPIN
     Indication: MUSCLE BUILDING THERAPY
     Route: 065

REACTIONS (5)
  - Product outer packaging issue [Unknown]
  - Product counterfeit [Unknown]
  - Product use in unapproved indication [Unknown]
  - Drug abuse [Unknown]
  - Product packaging quantity issue [Unknown]
